FAERS Safety Report 8025221-0 (Version None)
Quarter: 2012Q1

REPORT INFORMATION
  Report Type: 
  Country: None (occurrence: None)
  Receive Date: 20120105
  Receipt Date: 20120102
  Transmission Date: 20120608
  Serious: Yes (Other)
  Sender: FDA-Public Use
  Company Number: BR-ROCHE-1027161

PATIENT
  Sex: Female

DRUGS (1)
  1. XOLAIR [Suspect]
     Indication: ASTHMA
     Route: 058

REACTIONS (5)
  - FATIGUE [None]
  - RESPIRATORY TRACT INFECTION [None]
  - ASTHMA [None]
  - SINUSITIS [None]
  - IMMUNODEFICIENCY [None]
